FAERS Safety Report 5227186-3 (Version None)
Quarter: 2007Q1

REPORT INFORMATION
  Report Type: 
  Country: None (occurrence: None)
  Receive Date: 20070202
  Receipt Date: 20070131
  Transmission Date: 20070707
  Serious: Yes (Hospitalization)
  Sender: FDA-Public Use
  Company Number: US-GLAXOSMITHKLINE-A0629449A

PATIENT
  Age: 47 Year
  Sex: Female
  Weight: 104.5 kg

DRUGS (10)
  1. LAMICTAL [Suspect]
     Indication: PAIN
     Dosage: 25MG SINGLE DOSE
     Route: 048
     Dates: start: 20061120, end: 20061120
  2. DETROL [Concomitant]
  3. WELLBUTRIN [Concomitant]
  4. ATIVAN [Concomitant]
  5. ZOLOFT [Concomitant]
  6. LITHIUM CARBONATE [Concomitant]
  7. PERCOCET [Concomitant]
  8. COPAXONE [Concomitant]
  9. AMBIEN [Concomitant]
  10. LYRICA [Concomitant]

REACTIONS (1)
  - MENINGITIS [None]
